FAERS Safety Report 18129527 (Version 2)
Quarter: 2020Q3

REPORT INFORMATION
  Report Type: Report from Study
  Country: FR (occurrence: FR)
  Receive Date: 20200810
  Receipt Date: 20200813
  Transmission Date: 20201103
  Serious: Yes (Hospitalization, Other)
  Sender: FDA-Public Use
  Company Number: FR-ADVANZ PHARMA-202006006894

PATIENT

DRUGS (18)
  1. TRACRIUM [Concomitant]
     Active Substance: ATRACURIUM BESYLATE
     Dosage: UNK
  2. ZITHROMAX [Suspect]
     Active Substance: AZITHROMYCIN DIHYDRATE
     Dosage: 250 MG, QD
     Route: 048
     Dates: start: 20200421, end: 20200424
  3. DIPRIVAN [Concomitant]
     Active Substance: PROPOFOL
     Dosage: UNK
  4. LANSOPRAZOLE. [Concomitant]
     Active Substance: LANSOPRAZOLE
  5. AMIKACIN. [Concomitant]
     Active Substance: AMIKACIN
     Dosage: UNK
  6. LASILIX [Concomitant]
     Active Substance: FUROSEMIDE
     Dosage: UNK
  7. KEVZARA [Suspect]
     Active Substance: SARILUMAB
     Indication: COVID-19
     Dosage: 400 MG, SINGLE DOSE FOR 1 HOUR
     Route: 042
     Dates: start: 20200420, end: 20200420
  8. KEVZARA [Suspect]
     Active Substance: SARILUMAB
     Dosage: 400 MG, QD
     Route: 042
     Dates: start: 20200422, end: 20200422
  9. HYPNOVEL [Concomitant]
     Active Substance: MIDAZOLAM
     Dosage: UNK
  10. NORADRENALINE [Concomitant]
     Active Substance: NOREPINEPHRINE
  11. NOVORAPID [Concomitant]
     Active Substance: INSULIN ASPART
  12. HYDROXYCHLOROQUINE SULFATE (AUTHORIZED GENERIC),PLAQUENIL [Suspect]
     Active Substance: HYDROXYCHLOROQUINE SULFATE
     Indication: COVID-19
     Dosage: 600 MG, QD
     Route: 048
     Dates: start: 20200420, end: 20200424
  13. HEPARIN [Concomitant]
     Active Substance: HEPARIN SODIUM
     Dosage: UNK
  14. UMULINE [Concomitant]
     Active Substance: INSULIN HUMAN
  15. TAZOCILLINE [Concomitant]
     Active Substance: PIPERACILLIN SODIUM\TAZOBACTAM SODIUM
     Dosage: UNK
  16. ZITHROMAX [Suspect]
     Active Substance: AZITHROMYCIN DIHYDRATE
     Indication: COVID-19
     Dosage: 500 MG, QD
     Route: 048
     Dates: start: 20200420, end: 20200420
  17. SUFENTA [Concomitant]
     Active Substance: SUFENTANIL CITRATE
  18. LANTUS [Concomitant]
     Active Substance: INSULIN GLARGINE

REACTIONS (7)
  - Staphylococcal infection [Not Recovered/Not Resolved]
  - Jugular vein thrombosis [Recovered/Resolved]
  - Thrombosis [Recovered/Resolved]
  - Pneumonia bacterial [Not Recovered/Not Resolved]
  - Staphylococcal bacteraemia [Not Recovered/Not Resolved]
  - Staphylococcal bacteraemia [Recovered/Resolved]
  - Off label use [Unknown]

NARRATIVE: CASE EVENT DATE: 20200420
